FAERS Safety Report 8315378-6 (Version None)
Quarter: 2012Q2

REPORT INFORMATION
  Report Type: 
  Country: None (occurrence: None)
  Receive Date: 20120426
  Receipt Date: 20120416
  Transmission Date: 20120825
  Serious: Yes (Hospitalization, Disabling)
  Sender: FDA-Public Use
  Company Number: JP-NAPPMUNDI-MAG-2012-0002144

PATIENT
  Sex: Male

DRUGS (3)
  1. RHEUMATREX [Concomitant]
     Indication: ANALGESIC THERAPY
     Route: 048
  2. BUPRENORPHINE [Suspect]
     Indication: ANALGESIC THERAPY
     Dosage: 5 MCG, Q1H
     Route: 062
     Dates: start: 20120328, end: 20120411
  3. LOXONIN [Concomitant]
     Indication: ANALGESIC THERAPY
     Route: 048

REACTIONS (4)
  - ABNORMAL BEHAVIOUR [None]
  - UNEVALUABLE EVENT [None]
  - SCREAMING [None]
  - ACTIVITIES OF DAILY LIVING IMPAIRED [None]
